FAERS Safety Report 25198952 (Version 1)
Quarter: 2025Q2

REPORT INFORMATION
  Report Type: Spontaneous
  Country: US (occurrence: US)
  Receive Date: 20250415
  Receipt Date: 20250415
  Transmission Date: 20250717
  Serious: No
  Sender: MARKSANS
  Company Number: US-MARKSANS PHARMA LIMITED-MPL202500037

PATIENT

DRUGS (1)
  1. GABAPENTIN [Suspect]
     Active Substance: GABAPENTIN
     Indication: Product used for unknown indication
     Route: 065

REACTIONS (3)
  - Peripheral swelling [Unknown]
  - Dyskinesia [Unknown]
  - Eye movement disorder [Unknown]
